FAERS Safety Report 14142054 (Version 1)
Quarter: 2017Q4

REPORT INFORMATION
  Report Type: Spontaneous
  Country: CH (occurrence: CH)
  Receive Date: 20171030
  Receipt Date: 20171030
  Transmission Date: 20180321
  Serious: Yes (Other)
  Sender: FDA-Public Use
  Company Number: CH-BECTON DICKINSON-2017BDN00263

PATIENT

DRUGS (1)
  1. CHLORHEXIDINE-ALCOHOL [Suspect]
     Active Substance: ALCOHOL\CHLORHEXIDINE GLUCONATE
     Indication: ANTIBIOTIC PROPHYLAXIS
     Route: 065

REACTIONS (1)
  - Anaphylactic reaction [Unknown]
